FAERS Safety Report 6398657-1 (Version None)
Quarter: 2009Q4

REPORT INFORMATION
  Report Type: 
  Country: None (occurrence: None)
  Receive Date: 20091013
  Receipt Date: 20091009
  Transmission Date: 20100525
  Serious: Yes (Hospitalization)
  Sender: FDA-Public Use
  Company Number: US-MERCK-0909USA01139

PATIENT
  Age: 52 Year
  Sex: Male
  Weight: 63 kg

DRUGS (6)
  1. ISENTRESS [Suspect]
     Indication: HIV INFECTION
     Route: 048
     Dates: start: 20090714
  2. ATRIPLA [Concomitant]
     Indication: HIV INFECTION
     Route: 048
     Dates: start: 20090714
  3. ACYCLOVIR [Concomitant]
     Indication: HERPES SIMPLEX
     Route: 048
     Dates: start: 20090714
  4. LEXAPRO [Concomitant]
     Indication: DEPRESSION
     Route: 048
     Dates: start: 20050103
  5. LIPITOR [Concomitant]
     Indication: HYPERCHLORAEMIA
     Route: 048
     Dates: start: 20051107
  6. LOTREL [Concomitant]
     Indication: HIV INFECTION
     Route: 048
     Dates: start: 20051107

REACTIONS (1)
  - NEPHROLITHIASIS [None]
